FAERS Safety Report 25952793 (Version 1)
Quarter: 2025Q4

REPORT INFORMATION
  Report Type: Spontaneous
  Country: US (occurrence: None)
  Receive Date: 20251022
  Receipt Date: 20251022
  Transmission Date: 20260118
  Serious: No
  Sender: FDA-CTU
  Company Number: None

PATIENT
  Age: 30 Year
  Sex: Male

DRUGS (2)
  1. DUPIXENT [Suspect]
     Active Substance: DUPILUMAB
  2. DUPIXENT [Concomitant]
     Active Substance: DUPILUMAB
     Dates: start: 20250415

REACTIONS (2)
  - Testicular pain [None]
  - Testicular swelling [None]

NARRATIVE: CASE EVENT DATE: 20251022
